FAERS Safety Report 23179393 (Version 2)
Quarter: 2025Q1

REPORT INFORMATION
  Report Type: Spontaneous
  Country: US (occurrence: US)
  Receive Date: 20231113
  Receipt Date: 20250331
  Transmission Date: 20250409
  Serious: Yes (Disabling)
  Sender: SANOFI AVENTIS
  Company Number: US-SA-SAC20231111000021

PATIENT
  Age: 13 Year
  Sex: Female

DRUGS (2)
  1. DUPIXENT [Suspect]
     Active Substance: DUPILUMAB
     Indication: Eczema
     Route: 058
     Dates: start: 20231021, end: 20231021
  2. DUPIXENT [Suspect]
     Active Substance: DUPILUMAB
     Dosage: 200 MG QOW
     Route: 058
     Dates: start: 20231104

REACTIONS (5)
  - Loss of personal independence in daily activities [Not Recovered/Not Resolved]
  - Eczema [Not Recovered/Not Resolved]
  - Pruritus [Not Recovered/Not Resolved]
  - Eye pruritus [Recovering/Resolving]
  - Eye irritation [Recovering/Resolving]

NARRATIVE: CASE EVENT DATE: 20230101
